FAERS Safety Report 7902824-2 (Version None)
Quarter: 2011Q4

REPORT INFORMATION
  Report Type: 
  Country: None (occurrence: None)
  Receive Date: 20111109
  Receipt Date: 20111101
  Transmission Date: 20120403
  Serious: No
  Sender: FDA-Public Use
  Company Number: US-BIOGENIDEC-2011BI041733

PATIENT
  Age: 48 Year
  Sex: Female

DRUGS (5)
  1. NORTRIPTYLINE HCL [Concomitant]
     Indication: HEADACHE
     Dates: start: 20110101, end: 20110101
  2. REQUIP [Concomitant]
     Indication: RESTLESS LEGS SYNDROME
     Dates: start: 20110601
  3. DARVOCET [Concomitant]
     Indication: RESTLESS LEGS SYNDROME
     Dates: end: 20110101
  4. AVONEX [Suspect]
     Indication: MULTIPLE SCLEROSIS
     Route: 030
     Dates: start: 20090603
  5. TOPAMAX [Concomitant]
     Indication: HEADACHE
     Dates: end: 20110101

REACTIONS (2)
  - HEADACHE [None]
  - OEDEMA PERIPHERAL [None]
